FAERS Safety Report 7810218-3 (Version None)
Quarter: 2011Q4

REPORT INFORMATION
  Report Type: 
  Country: None (occurrence: None)
  Receive Date: 20111012
  Receipt Date: 20111007
  Transmission Date: 20120403
  Serious: Yes (Death)
  Sender: FDA-Public Use
  Company Number: US-AMGEN-USASP2011049227

PATIENT
  Sex: Female

DRUGS (3)
  1. NPLATE [Suspect]
     Indication: IDIOPATHIC THROMBOCYTOPENIC PURPURA
  2. NPLATE [Suspect]
     Indication: THROMBOCYTOPENIA
     Dosage: 160 MUG, UNK
     Dates: start: 20081015
  3. CORTICOSTEROIDS [Concomitant]
     Indication: IDIOPATHIC THROMBOCYTOPENIC PURPURA
     Dosage: UNK
     Dates: start: 20080830

REACTIONS (1)
  - IDIOPATHIC THROMBOCYTOPENIC PURPURA [None]
